FAERS Safety Report 9448115 (Version 1)
Quarter: 2013Q3

REPORT INFORMATION
  Report Type: Spontaneous
  Country: US (occurrence: US)
  Receive Date: 20130808
  Receipt Date: 20130808
  Transmission Date: 20140515
  Serious: Yes (Hospitalization)
  Sender: FDA-Public Use
  Company Number: US-MERCK-1308USA001831

PATIENT
  Age: 54 Year
  Sex: Female

DRUGS (3)
  1. VICTRELIS [Suspect]
     Indication: CHRONIC HEPATITIS
     Dosage: 800 MG/3 TIMES DAILY
     Route: 048
     Dates: start: 20130318
  2. PEG-INTRON [Suspect]
  3. REBETOL [Suspect]
     Route: 048

REACTIONS (2)
  - Pyrexia [Recovering/Resolving]
  - Drug dose omission [Unknown]
